FAERS Safety Report 22074302 (Version 2)
Quarter: 2023Q1

REPORT INFORMATION
  Report Type: Report from Study
  Country: JP (occurrence: JP)
  Receive Date: 20230308
  Receipt Date: 20230309
  Transmission Date: 20230418
  Serious: No
  Sender: FDA-Public Use
  Company Number: JP-PFIZER INC-PV202300043143

PATIENT
  Age: 67 Year
  Sex: Male

DRUGS (1)
  1. GEMCITABINE HYDROCHLORIDE [Suspect]
     Active Substance: GEMCITABINE HYDROCHLORIDE
     Indication: Bile duct cancer
     Dosage: 1000 MG/M3, CYCLIC (ONCE A WEEK FOR 3 WEEKS FOLLOWED BY 1 WEEK^S RESPITE,  ONE COURSE OF 4 WEEKS)
     Route: 042

REACTIONS (1)
  - No adverse event [Unknown]
